FAERS Safety Report 25167717 (Version 1)
Quarter: 2025Q2

REPORT INFORMATION
  Report Type: Spontaneous
  Country: US (occurrence: None)
  Receive Date: 20250407
  Receipt Date: 20250407
  Transmission Date: 20250716
  Serious: Yes (Hospitalization, Other)
  Sender: INCYTE
  Company Number: US-INCYTE CORPORATION-2025IN003648

PATIENT
  Age: 78 Year

DRUGS (2)
  1. JAKAFI [Suspect]
     Active Substance: RUXOLITINIB
     Indication: Myelofibrosis
     Route: 065
  2. PACRITINIB [Concomitant]
     Active Substance: PACRITINIB
     Indication: Myelofibrosis
     Route: 065

REACTIONS (4)
  - Neuroendocrine carcinoma of the skin [Unknown]
  - Streptococcal bacteraemia [Unknown]
  - Mental disorder [Not Recovered/Not Resolved]
  - General physical health deterioration [Unknown]
